FAERS Safety Report 6156180-3 (Version None)
Quarter: 2009Q2

REPORT INFORMATION
  Report Type: 
  Country: None (occurrence: None)
  Receive Date: 20090415
  Receipt Date: 20090408
  Transmission Date: 20091009
  Serious: Yes (Hospitalization)
  Sender: FDA-Public Use
  Company Number: US-WYE-H04401408

PATIENT
  Sex: Male
  Weight: 15.3 kg

DRUGS (3)
  1. BENEFIX [Suspect]
     Indication: FACTOR IX DEFICIENCY
     Dosage: UNKNOWN DOSE TWO TIMES PER  WEEK
     Route: 042
     Dates: start: 20080401, end: 20080501
  2. BENEFIX [Suspect]
     Dosage: 507 IU/REGIMEN AT UNKNOWN FREQUENCY (TOTAL CUMULATIVE DOSE=8-10,000 IU)
     Dates: start: 20080101, end: 20080401
  3. BENEFIX [Suspect]
     Dosage: 1000 IU (ON DEMAND) EVERY 12-24 HOURS
     Dates: start: 20080506, end: 20080507

REACTIONS (3)
  - CATHETER SITE HAEMORRHAGE [None]
  - FACTOR IX INHIBITION [None]
  - SOMNOLENCE [None]
